FAERS Safety Report 5454119-7 (Version None)
Quarter: 2007Q3

REPORT INFORMATION
  Report Type: 
  Country: None (occurrence: None)
  Receive Date: 20070917
  Receipt Date: 20070709
  Transmission Date: 20080115
  Serious: Yes (Other)
  Sender: FDA-Public Use
  Company Number: US-ASTRAZENECA-2006UW08860

PATIENT
  Age: 415 Month
  Sex: Female

DRUGS (6)
  1. SEROQUEL [Suspect]
     Indication: INSOMNIA
     Route: 048
     Dates: start: 20000101, end: 20051101
  2. SEROQUEL [Suspect]
     Indication: DEPRESSION
     Route: 048
     Dates: start: 20000101, end: 20051101
  3. SEROQUEL [Suspect]
     Indication: ANXIETY
     Route: 048
     Dates: start: 20000101, end: 20051101
  4. RISPERDAL [Suspect]
     Indication: INSOMNIA
     Dates: start: 20030101
  5. RISPERDAL [Suspect]
     Indication: DEPRESSION
     Dates: start: 20030101
  6. RISPERDAL [Suspect]
     Indication: ANXIETY
     Dates: start: 20030101

REACTIONS (1)
  - PANCREATITIS [None]
